FAERS Safety Report 7791006-3 (Version None)
Quarter: 2011Q4

REPORT INFORMATION
  Report Type: 
  Country: None (occurrence: None)
  Receive Date: 20111003
  Receipt Date: 20110927
  Transmission Date: 20120403
  Serious: Yes (Hospitalization)
  Sender: FDA-Public Use
  Company Number: FR-BRISTOL-MYERS SQUIBB COMPANY-16113607

PATIENT
  Age: 49 Year
  Sex: Female

DRUGS (3)
  1. TRIHEXYPHENIDYL HYDROCHLORIDE [Suspect]
     Indication: DEPRESSION
     Dosage: 1 DOSAGE FORM: EXTENDED-RELEASE CAPSULE; TRIHEXYPHENIDYL HYDROCHLOPRIDE 5 MG,
     Route: 048
     Dates: start: 20110401, end: 20110730
  2. ESCITALOPRAM OXALATE [Suspect]
     Indication: DEPRESSION
     Dosage: 1 DOSAGE FORM: SCORED FILM-COATED TABLET;  ESCITALOPRAM OXALATE 10 MG
     Route: 048
     Dates: start: 20110401, end: 20110730
  3. ABILIFY [Suspect]
     Indication: DEPRESSION
     Route: 048
     Dates: start: 20110401, end: 20110730

REACTIONS (3)
  - FALL [None]
  - CEREBRAL HAEMATOMA [None]
  - APHASIA [None]
